FAERS Safety Report 5167754-0 (Version None)
Quarter: 2006Q4

REPORT INFORMATION
  Report Type: 
  Country: None (occurrence: None)
  Receive Date: 20061204
  Receipt Date: 20061204
  Transmission Date: 20070319
  Serious: Yes (Life-Threatening, Hospitalization, Other)
  Sender: FDA-Public Use
  Company Number: None

PATIENT
  Age: 51 Year
  Sex: Male
  Weight: 99.7913 kg

DRUGS (9)
  1. HUMIRA [Suspect]
     Indication: ARTHRITIS REACTIVE
     Dosage: 40 MG Q 2 WKS SC INJ
     Route: 058
     Dates: end: 20061103
  2. PREDNISONE TAB [Concomitant]
  3. HYDROXYCHLOROQUINE SULFATE [Concomitant]
  4. METHOTREXATE [Concomitant]
  5. PREVACID [Concomitant]
  6. LOTENSIN [Concomitant]
  7. HCT [Concomitant]
  8. FOLIC ACID [Concomitant]
  9. ACTONEL [Concomitant]

REACTIONS (6)
  - HAEMATURIA [None]
  - NEPHROLITHIASIS [None]
  - NON-HODGKIN'S LYMPHOMA [None]
  - PANCREATIC MASS [None]
  - RENAL CELL CARCINOMA STAGE UNSPECIFIED [None]
  - RENAL CYST [None]
